FAERS Safety Report 15492808 (Version 6)
Quarter: 2023Q1

REPORT INFORMATION
  Report Type: Spontaneous
  Country: JP (occurrence: JP)
  Receive Date: 20181012
  Receipt Date: 20230217
  Transmission Date: 20230418
  Serious: Yes (Hospitalization, Other)
  Sender: FDA-Public Use
  Company Number: None

PATIENT
  Age: 37 Year
  Sex: Female

DRUGS (1)
  1. LEVONORGESTREL [Suspect]
     Active Substance: LEVONORGESTREL
     Indication: Oral contraception
     Dosage: 1.5 MG, UNK
     Route: 048

REACTIONS (6)
  - Ectopic pregnancy under hormonal contraception [Recovered/Resolved]
  - Exposure during pregnancy [Unknown]
  - Endometriosis [Unknown]
  - Intra-abdominal haemorrhage [Unknown]
  - Haematosalpinx [Unknown]
  - Fallopian tube perforation [Unknown]
